FAERS Safety Report 6768859-0 (Version None)
Quarter: 2010Q2

REPORT INFORMATION
  Report Type: 
  Country: None (occurrence: None)
  Receive Date: 20100611
  Receipt Date: 20100601
  Transmission Date: 20101027
  Serious: Yes (Death, Other)
  Sender: FDA-Public Use
  Company Number: 2010SCPR001149

PATIENT
  Age: 36 Year
  Sex: Male

DRUGS (4)
  1. RISPERIDONE [Suspect]
     Indication: SCHIZOPHRENIA
  2. HALOPERIDOL [Suspect]
     Indication: ACUTE PSYCHOSIS
  3. CHLORPROMAZINE [Suspect]
     Indication: ACUTE PSYCHOSIS
  4. OLANZAPINE [Suspect]
     Indication: ACUTE PSYCHOSIS

REACTIONS (3)
  - ACUTE PSYCHOSIS [None]
  - RESPIRATORY DISTRESS [None]
  - SPASMODIC DYSPHONIA [None]
